FAERS Safety Report 13898701 (Version 3)
Quarter: 2017Q3

REPORT INFORMATION
  Report Type: Report from Study
  Country: US (occurrence: MX)
  Receive Date: 20170823
  Receipt Date: 20170915
  Transmission Date: 20171127
  Serious: Yes (Other)
  Sender: FDA-Public Use
  Company Number: US-SUNOVION-2017SUN003722

PATIENT
  Sex: Male

DRUGS (4)
  1. XARELTO [Concomitant]
     Active Substance: RIVAROXABAN
  2. GLYCOPYRROLATE. [Suspect]
     Active Substance: GLYCOPYRROLATE
     Indication: PULMONARY OEDEMA
     Dosage: 1 DF (50 UG), QD
     Route: 055
  3. ENTRESTO [Suspect]
     Active Substance: SACUBITRIL\VALSARTAN
     Indication: HYPERTENSIVE CARDIOMYOPATHY
     Dosage: 1 DF (50 MG) , QD
     Route: 048
  4. ROFUCAL [Concomitant]
     Dosage: UNK

REACTIONS (5)
  - Mitral valve incompetence [Unknown]
  - Memory impairment [Not Recovered/Not Resolved]
  - Sleep apnoea syndrome [Not Recovered/Not Resolved]
  - Product use in unapproved indication [Unknown]
  - Dry mouth [Not Recovered/Not Resolved]
